FAERS Safety Report 9257340 (Version 1)
Quarter: 2013Q1

REPORT INFORMATION
  Report Type: Spontaneous
  Country: US (occurrence: None)
  Receive Date: 20121212
  Receipt Date: 20121212
  Transmission Date: 20140127
  Serious: No
  Sender: FDA-Public Use
  Company Number: 1208USA001870

PATIENT
  Age: 61 Year
  Sex: Male

DRUGS (3)
  1. PEGINTRON [Suspect]
     Indication: HEPATITIS C
     Dates: start: 20120716
  2. REBETOL [Suspect]
     Indication: HEPATITIS C
     Dates: start: 20120717
  3. VICTRELIS [Suspect]
     Indication: HEPATITIS C
     Dates: start: 20120814

REACTIONS (11)
  - Headache [None]
  - Insomnia [None]
  - Drug dose omission [None]
  - Eye pain [None]
  - Dysgeusia [None]
  - Hypersomnia [None]
  - Pyrexia [None]
  - Fatigue [None]
  - Asthenia [None]
  - Decreased appetite [None]
  - Haemoglobin decreased [None]
